FAERS Safety Report 8904552 (Version 1)
Quarter: 2012Q4

REPORT INFORMATION
  Report Type: 
  Country: CA (occurrence: CA)
  Receive Date: 20121113
  Receipt Date: 20121113
  Transmission Date: 20130627
  Serious: Yes (Other)
  Sender: FDA-Public Use
  Company Number: PHBS2000CA08368

PATIENT
  Age: 81 Year
  Sex: Female

DRUGS (3)
  1. EXELON [Suspect]
     Dosage: 1.5 mg/d
     Dates: start: 20000727, end: 20000810
  2. EXELON [Suspect]
     Dosage: 3.0 mg, BID
  3. ASPIRINE [Concomitant]
     Indication: CARDIAC DISORDER

REACTIONS (4)
  - Gastric haemorrhage [Not Recovered/Not Resolved]
  - Diarrhoea [Recovered/Resolved]
  - Nausea [Recovered/Resolved]
  - Vomiting [Recovered/Resolved]
